FAERS Safety Report 18767971 (Version 5)
Quarter: 2024Q2

REPORT INFORMATION
  Report Type: Spontaneous
  Country: JP (occurrence: JP)
  Receive Date: 20210121
  Receipt Date: 20240612
  Transmission Date: 20240716
  Serious: Yes (Hospitalization, Other)
  Sender: FDA-Public Use
  Company Number: JP-ONO-2021JP001391

PATIENT
  Age: 81 Year
  Sex: Male
  Weight: 58 kg

DRUGS (11)
  1. BRAFTOVI [Suspect]
     Active Substance: ENCORAFENIB
     Indication: Malignant melanoma
     Dosage: 450 MG
     Route: 048
     Dates: start: 20201228, end: 20201228
  2. BRAFTOVI [Suspect]
     Active Substance: ENCORAFENIB
     Dosage: 200 MG, EVERYDAY
     Route: 048
     Dates: start: 20210104, end: 20210131
  3. BRAFTOVI [Suspect]
     Active Substance: ENCORAFENIB
     Dosage: 300 MG, EVERYDAY
     Route: 048
     Dates: start: 20210201, end: 20210501
  4. BRAFTOVI [Suspect]
     Active Substance: ENCORAFENIB
     Dosage: 200 MG
     Route: 048
     Dates: start: 20210607
  5. MEKTOVI [Suspect]
     Active Substance: BINIMETINIB
     Indication: Malignant melanoma
     Dosage: 45 MG
     Route: 048
     Dates: start: 20201228, end: 20201229
  6. MEKTOVI [Suspect]
     Active Substance: BINIMETINIB
     Dosage: 15 MG, Q12H
     Route: 048
     Dates: start: 20210104, end: 20210131
  7. MEKTOVI [Suspect]
     Active Substance: BINIMETINIB
     Dosage: 60 MG, EVERYDAY
     Route: 048
     Dates: start: 20210201, end: 20210501
  8. MEKTOVI [Suspect]
     Active Substance: BINIMETINIB
     Dosage: 30 MG
     Route: 048
     Dates: start: 20210607
  9. VONOPRAZAN FUMARATE [Concomitant]
     Active Substance: VONOPRAZAN FUMARATE
     Dosage: 20 MG, EVERYDAY
     Route: 048
     Dates: start: 20201228, end: 20210222
  10. ELOBIXIBAT [Concomitant]
     Active Substance: ELOBIXIBAT
     Dosage: 5 MG, EVERYDAY
     Route: 048
     Dates: start: 20201228, end: 20210222
  11. ALOSENN [SENNOSIDE A+B] [Concomitant]
     Dosage: 0.5 G, EVERYDAY, GRAIN
     Route: 048
     Dates: start: 20201228, end: 20210222

REACTIONS (5)
  - Uveitis [Recovered/Resolved]
  - Retinal detachment [Recovered/Resolved]
  - Neoplasm progression [Unknown]
  - Blood bilirubin increased [Recovered/Resolved]
  - Hepatic function abnormal [Recovered/Resolved]

NARRATIVE: CASE EVENT DATE: 20201229
